FAERS Safety Report 4648434-4 (Version None)
Quarter: 2005Q2

REPORT INFORMATION
  Report Type: 
  Country: None (occurrence: None)
  Receive Date: 20050427
  Receipt Date: 20050408
  Transmission Date: 20051028
  Serious: Yes (Death, Other)
  Sender: FDA-Public Use
  Company Number: JP_040102438

PATIENT
  Age: 75 Year
  Sex: Male

DRUGS (1)
  1. PERMAX [Suspect]
     Indication: PARKINSON'S DISEASE
     Dosage: 2250 UG DAY

REACTIONS (6)
  - CHEST PAIN [None]
  - CHEST WALL MASS [None]
  - HAEMOTHORAX [None]
  - PLEURAL EFFUSION [None]
  - PLEURISY [None]
  - PNEUMONIA ASPIRATION [None]
